FAERS Safety Report 9482331 (Version 1)
Quarter: 2013Q3

REPORT INFORMATION
  Report Type: Spontaneous
  Country: CA (occurrence: None)
  Receive Date: 20130822
  Receipt Date: 20130822
  Transmission Date: 20140515
  Serious: Yes (Other)
  Sender: FDA-Public Use
  Company Number: JPI-P-034544

PATIENT
  Age: 45 Year
  Sex: Male

DRUGS (2)
  1. XYREM [Suspect]
     Indication: CATAPLEXY
     Dosage: (2.25 GM, 2 IN 1 D)
     Route: 048
     Dates: start: 20071222, end: 20080604
  2. DEXEDRINE [Concomitant]

REACTIONS (3)
  - Fall [None]
  - Clavicle fracture [None]
  - Scratch [None]
